FAERS Safety Report 8043996-1 (Version None)
Quarter: 2012Q1

REPORT INFORMATION
  Report Type: 
  Country: None (occurrence: None)
  Receive Date: 20120113
  Receipt Date: 20120106
  Transmission Date: 20120608
  Serious: Yes (Hospitalization)
  Sender: FDA-Public Use
  Company Number: US-PAR PHARMACEUTICAL, INC-2011SCPR003559

PATIENT

DRUGS (21)
  1. OLANZAPINE [Suspect]
     Indication: MENTAL DISORDER
     Dosage: 1.25 MG, HS (QHS)
     Route: 065
     Dates: start: 20061011
  2. ARSENIC TRIOXIDE [Interacting]
     Indication: ACUTE PROMYELOCYTIC LEUKAEMIA
     Dosage: 0.15 MG/KG, OVER 2 HOURS
     Route: 042
     Dates: start: 20060929
  3. ALPRAZOLAM [Concomitant]
     Indication: ANXIETY DISORDER
     Dosage: 0.5 MG, BID
     Route: 065
  4. LORAZEPAM [Concomitant]
     Indication: ANXIETY DISORDER
     Dosage: UPTO 6 MG, / DAY
     Route: 065
  5. OLANZAPINE [Interacting]
     Dosage: 2.5 MG, HS  (QHS)
     Route: 065
     Dates: start: 20061015
  6. VANCOMYCIN [Concomitant]
     Indication: PYREXIA
     Dosage: UNK, UNKNOWN
     Route: 065
  7. ESOMEPRAZOLE SODIUM [Concomitant]
     Indication: PRODUCT USED FOR UNKNOWN INDICATION
     Dosage: UNK, UNKNOWN
     Route: 065
  8. FLUTICASONE PROPIONATE/SALMETEROL [Concomitant]
     Indication: PRODUCT USED FOR UNKNOWN INDICATION
     Dosage: UNK, UNKNOWN
     Route: 065
  9. ACYCLOVIR [Concomitant]
     Indication: PYREXIA
     Dosage: UNK, UNKNOWN
     Route: 065
  10. CALCIUM ACETATE [Concomitant]
     Indication: PRODUCT USED FOR UNKNOWN INDICATION
     Dosage: UNK, UNKNOWN
     Route: 065
  11. AZTREONAM [Concomitant]
     Indication: PYREXIA
     Dosage: UNK, UNKNOWN
     Route: 065
  12. LINEZOLID [Concomitant]
     Indication: PYREXIA
     Dosage: UNK, UNKNOWN
     Route: 065
  13. DOCUSATE [Concomitant]
     Indication: PRODUCT USED FOR UNKNOWN INDICATION
     Dosage: UNK, UNKNOWN
     Route: 065
  14. POTASSIUM CHLORIDE [Concomitant]
     Indication: PRODUCT USED FOR UNKNOWN INDICATION
     Dosage: UNK, UNKNOWN
     Route: 065
  15. ZOLPIDEM [Concomitant]
     Indication: PRODUCT USED FOR UNKNOWN INDICATION
     Dosage: UNK, UNKNOWN
     Route: 065
  16. OLANZAPINE [Interacting]
     Dosage: 2.5 MG, BID
     Route: 065
     Dates: start: 20061018
  17. ALLOPURINOL [Concomitant]
     Indication: PRODUCT USED FOR UNKNOWN INDICATION
     Dosage: UNK, UNKNOWN
     Route: 065
  18. IPRATROPIUM BROMIDE AND ALBUTEROL [Concomitant]
     Indication: PRODUCT USED FOR UNKNOWN INDICATION
     Dosage: UNK, UNKNOWN
     Route: 065
  19. OXYCODONE HCL [Concomitant]
     Indication: PRODUCT USED FOR UNKNOWN INDICATION
     Dosage: UNK, UNKNOWN
     Route: 065
  20. VERAPAMIL [Concomitant]
     Indication: PRODUCT USED FOR UNKNOWN INDICATION
     Dosage: UNK, UNKNOWN
     Route: 065
  21. FLUTICASONE [Concomitant]
     Indication: PRODUCT USED FOR UNKNOWN INDICATION
     Dosage: UNK, UNKNOWN
     Route: 065

REACTIONS (2)
  - ELECTROCARDIOGRAM QT PROLONGED [None]
  - DRUG INTERACTION [None]
